FAERS Safety Report 17870609 (Version 3)
Quarter: 2020Q4

REPORT INFORMATION
  Report Type: Spontaneous
  Country: US (occurrence: US)
  Receive Date: 20200608
  Receipt Date: 20201125
  Transmission Date: 20210113
  Serious: No
  Sender: FDA-Public Use
  Company Number: US-PFIZER INC-2020221703

PATIENT
  Age: 64 Year
  Sex: Female
  Weight: 122.47 kg

DRUGS (7)
  1. LYRICA [Suspect]
     Active Substance: PREGABALIN
     Indication: FIBROMYALGIA
     Dosage: 75 MG, 3X/DAY
     Dates: start: 2015, end: 202001
  2. SKELAXINE [Concomitant]
     Active Substance: ACETAMINOPHEN\CHLORZOXAZONE
     Dosage: 800 MG, 4X/DAY
     Dates: end: 202001
  3. VOLTAREN [DICLOFENAC] [Concomitant]
     Active Substance: DICLOFENAC SODIUM
     Indication: ARTHRITIS
     Dosage: UNK
  4. LYRICA [Suspect]
     Active Substance: PREGABALIN
     Indication: ARTHRITIS
  5. LYRICA [Suspect]
     Active Substance: PREGABALIN
     Indication: MYALGIA
  6. SKELAXINE [Concomitant]
     Active Substance: ACETAMINOPHEN\CHLORZOXAZONE
     Dosage: UNK
     Dates: start: 1995
  7. TOVIAZ [Concomitant]
     Active Substance: FESOTERODINE FUMARATE
     Dosage: 4 MG, 2X/DAY (TAKES 4MG IN THE MORNING AND 4MG AT NIGHT)
     Dates: end: 202001

REACTIONS (10)
  - Arthralgia [Unknown]
  - Drug ineffective [Unknown]
  - Back pain [Unknown]
  - Insomnia [Unknown]
  - Gait disturbance [Unknown]
  - Gait inability [Unknown]
  - Nocturia [Unknown]
  - Pain in extremity [Unknown]
  - Neck pain [Unknown]
  - Feeling abnormal [Unknown]
